FAERS Safety Report 6604332-8 (Version None)
Quarter: 2010Q1

REPORT INFORMATION
  Report Type: 
  Country: None (occurrence: None)
  Receive Date: 20100226
  Receipt Date: 20090824
  Transmission Date: 20100710
  Serious: No
  Sender: FDA-Public Use
  Company Number: A0803796A

PATIENT
  Age: 43 Year
  Sex: Female

DRUGS (6)
  1. LAMICTAL CD [Suspect]
     Dosage: 200MG PER DAY
     Route: 048
     Dates: start: 20070101
  2. LAMOTRIGINE [Suspect]
     Dosage: 200MG PER DAY
     Route: 048
  3. ABILIFY [Concomitant]
  4. EFFEXOR [Concomitant]
  5. FLOMAX [Concomitant]
  6. ALLEGRA D 24 HOUR [Concomitant]

REACTIONS (4)
  - ALOPECIA [None]
  - AMNESIA [None]
  - MEMORY IMPAIRMENT [None]
  - SOMNOLENCE [None]
